FAERS Safety Report 7377089-3 (Version None)
Quarter: 2011Q1

REPORT INFORMATION
  Report Type: 
  Country: None (occurrence: None)
  Receive Date: 20110328
  Receipt Date: 20110316
  Transmission Date: 20110831
  Serious: No
  Sender: FDA-Public Use
  Company Number: US-BIOGENIDEC-2011BI010299

PATIENT
  Age: 34 Year
  Sex: Male

DRUGS (1)
  1. TYSABRI [Suspect]
     Indication: MULTIPLE SCLEROSIS
     Route: 042
     Dates: start: 20100826

REACTIONS (5)
  - RASH PAPULAR [None]
  - EYE SWELLING [None]
  - RASH PRURITIC [None]
  - HYPOPHAGIA [None]
  - FATIGUE [None]
